FAERS Safety Report 8156224-3 (Version None)
Quarter: 2012Q1

REPORT INFORMATION
  Report Type: 
  Country: None (occurrence: None)
  Receive Date: 20120222
  Receipt Date: 20120214
  Transmission Date: 20120608
  Serious: Yes (Life-Threatening, Hospitalization)
  Sender: FDA-Public Use
  Company Number: JP-PFIZER INC-2011304805

PATIENT
  Age: 76 Year
  Sex: Female
  Weight: 48 kg

DRUGS (8)
  1. OMEPRAZOLE [Concomitant]
     Indication: GASTRITIS
     Dosage: 20 MG, 1X/DAY
     Route: 048
     Dates: start: 20040101
  2. AMARYL [Concomitant]
     Indication: DIABETES MELLITUS
     Dosage: 2 MG, 1X/DAY
     Route: 048
     Dates: start: 20040101
  3. AMLODIPINE [Concomitant]
     Indication: HYPERTENSION
     Dosage: 5 MG, 1X/DAY
     Route: 048
     Dates: start: 20040101
  4. PRAVASTATIN SODIUM [Concomitant]
     Indication: HYPERLIPIDAEMIA
     Dosage: 5 MG, 1X/DAY
     Route: 048
     Dates: start: 20040101
  5. GASLON [Concomitant]
     Indication: GASTRITIS
     Dosage: 4 MG, 1X/DAY
     Route: 048
     Dates: start: 20040101
  6. AZULFIDINE [Suspect]
     Indication: RHEUMATOID ARTHRITIS
     Dosage: 250 MG, 2X/DAY
     Route: 048
     Dates: start: 20110708, end: 20110701
  7. BASEN [Concomitant]
     Indication: DIABETES MELLITUS
     Dosage: 0.2 MG, 3X/DAY
     Route: 048
     Dates: start: 20040101
  8. CELECOXIB [Suspect]
     Indication: RHEUMATOID ARTHRITIS
     Dosage: 200 MG, 2X/DAY
     Route: 048
     Dates: start: 20110707

REACTIONS (2)
  - MENINGITIS BACTERIAL [None]
  - HISTIOCYTOSIS HAEMATOPHAGIC [None]
